FAERS Safety Report 21639495 (Version 3)
Quarter: 2023Q1

REPORT INFORMATION
  Report Type: Report from Study
  Country: GB (occurrence: GB)
  Receive Date: 20221124
  Receipt Date: 20230110
  Transmission Date: 20230418
  Serious: Yes (Hospitalization, Other)
  Sender: FDA-Public Use
  Company Number: GB-AMGEN-GBRSL2022195107

PATIENT
  Sex: Female

DRUGS (7)
  1. ADALIMUMAB [Suspect]
     Active Substance: ADALIMUMAB
     Indication: Rheumatoid arthritis
     Dosage: 40 MILLIGRAM, Q2WK
     Route: 058
     Dates: start: 20220817
  2. METHOTREXATE [Concomitant]
     Active Substance: METHOTREXATE
  3. LANSOPRAZOLE [Concomitant]
     Active Substance: LANSOPRAZOLE
  4. FOLIC ACID [Concomitant]
     Active Substance: FOLIC ACID
  5. PREGABALIN [Concomitant]
     Active Substance: PREGABALIN
  6. MORPHINE SULFATE [Concomitant]
     Active Substance: MORPHINE SULFATE
  7. MORPHINE [Concomitant]
     Active Substance: MORPHINE

REACTIONS (14)
  - Gastritis [Unknown]
  - Headache [Unknown]
  - Secondary immunodeficiency [Unknown]
  - Viral infection [Unknown]
  - Malaise [Unknown]
  - Depressed mood [Unknown]
  - Dizziness [Unknown]
  - Migraine [Unknown]
  - Nasopharyngitis [Unknown]
  - Dyspnoea [Unknown]
  - Dehydration [Unknown]
  - Nausea [Unknown]
  - Illness [Unknown]
  - Osteoporosis [Unknown]

NARRATIVE: CASE EVENT DATE: 20220101
